FAERS Safety Report 10753278 (Version 2)
Quarter: 2015Q1

REPORT INFORMATION
  Report Type: Spontaneous
  Country: US (occurrence: US)
  Receive Date: 20150130
  Receipt Date: 20150226
  Transmission Date: 20150721
  Serious: No
  Sender: FDA-Public Use
  Company Number: US-PFIZER INC-2015039377

PATIENT
  Age: 56 Year
  Sex: Female

DRUGS (7)
  1. CODEINE [Suspect]
     Active Substance: CODEINE
     Dosage: UNK
  2. HYDROCHLOROTHIAZIDE. [Suspect]
     Active Substance: HYDROCHLOROTHIAZIDE
     Dosage: UNK
  3. ZOLOFT [Suspect]
     Active Substance: SERTRALINE HYDROCHLORIDE
     Dosage: UNK
  4. DEXILANT [Suspect]
     Active Substance: DEXLANSOPRAZOLE
     Dosage: UNK
  5. XALATAN [Suspect]
     Active Substance: LATANOPROST
     Dosage: UNK
  6. LISINOPRIL. [Suspect]
     Active Substance: LISINOPRIL
     Dosage: UNK
  7. SINGULAIR [Suspect]
     Active Substance: MONTELUKAST SODIUM
     Dosage: UNK

REACTIONS (1)
  - Drug hypersensitivity [Unknown]
